FAERS Safety Report 17023249 (Version 20)
Quarter: 2021Q1

REPORT INFORMATION
  Report Type: Spontaneous
  Country: CA (occurrence: CA)
  Receive Date: 20191112
  Receipt Date: 20210319
  Transmission Date: 20210419
  Serious: Yes (Other)
  Sender: FDA-Public Use
  Company Number: CA-CELLTRION INC.-2018CA023877

PATIENT

DRUGS (19)
  1. INFLECTRA [Suspect]
     Active Substance: INFLIXIMAB-DYYB
     Dosage: 300 MG AT 0, 2, 6, THEN EVERY 8 WEEKS
     Route: 042
     Dates: start: 20190326
  2. INFLECTRA [Suspect]
     Active Substance: INFLIXIMAB-DYYB
     Dosage: 300 MG AT 0, 2, 6, THEN EVERY 8 WEEKS
     Route: 042
     Dates: start: 20200320
  3. INFLECTRA [Suspect]
     Active Substance: INFLIXIMAB-DYYB
     Dosage: 300 MG AT 0, 2, 6, THEN EVERY 8 WEEKS
     Route: 042
     Dates: start: 20200616, end: 20200616
  4. INFLECTRA [Suspect]
     Active Substance: INFLIXIMAB-DYYB
     Dosage: 10 MG/KG EVERY 8 WEEKS
     Route: 042
     Dates: start: 20201013
  5. INFLECTRA [Suspect]
     Active Substance: INFLIXIMAB-DYYB
     Dosage: 300 MG AT 0, 2, 6, THEN EVERY 8 WEEKS
     Route: 042
     Dates: start: 20190621
  6. INFLECTRA [Suspect]
     Active Substance: INFLIXIMAB-DYYB
     Dosage: 10 MG/KG EVERY 8 WEEKS
     Route: 042
     Dates: start: 20201214
  7. INFLECTRA [Suspect]
     Active Substance: INFLIXIMAB-DYYB
     Dosage: 300 MG AT 0, 2, 6, THEN EVERY 8 WEEKS; WEEK 6 DOSE
     Route: 042
     Dates: start: 20181204, end: 20181204
  8. INFLECTRA [Suspect]
     Active Substance: INFLIXIMAB-DYYB
     Dosage: 300 MG AT 0, 2, 6, THEN EVERY 8 WEEKS
     Route: 042
     Dates: start: 20190129
  9. INFLECTRA [Suspect]
     Active Substance: INFLIXIMAB-DYYB
     Dosage: 300 MG AT 0, 2, 6, THEN EVERY 8 WEEKS
     Route: 042
     Dates: start: 20191030
  10. INFLECTRA [Suspect]
     Active Substance: INFLIXIMAB-DYYB
     Dosage: 10 MG/KG EVERY 8 WEEKS
     Route: 042
     Dates: start: 20201013
  11. INFLECTRA [Suspect]
     Active Substance: INFLIXIMAB-DYYB
     Dosage: 300 MG AT 0, 2, 6, THEN EVERY 8 WEEKS
     Route: 042
     Dates: start: 20200220
  12. INFLECTRA [Suspect]
     Active Substance: INFLIXIMAB-DYYB
     Dosage: 10 MG/KG EVERY 8 WEEKS
     Route: 042
     Dates: start: 20210309
  13. CALCIUM [Concomitant]
     Active Substance: CALCIUM
     Indication: PROPHYLAXIS
     Dosage: 1 DF
     Route: 065
  14. INFLECTRA [Suspect]
     Active Substance: INFLIXIMAB-DYYB
     Dosage: 300 MG AT 0, 2, 6, THEN EVERY 8 WEEKS; WEEK 2 DOSE
     Route: 042
     Dates: start: 20181029, end: 20181029
  15. PREDNISONE. [Concomitant]
     Active Substance: PREDNISONE
     Dosage: 1 DF
     Route: 065
  16. INFLECTRA [Suspect]
     Active Substance: INFLIXIMAB-DYYB
     Indication: CROHN^S DISEASE
     Dosage: 300 MG AT 0, 2, 6, THEN EVERY 8 WEEKS; WEEK 0 DOSE
     Route: 042
     Dates: start: 20181015, end: 20181015
  17. INFLECTRA [Suspect]
     Active Substance: INFLIXIMAB-DYYB
     Dosage: 300 MG AT 0, 2, 6, THEN EVERY 8 WEEKS
     Route: 042
     Dates: start: 20190815
  18. INFLECTRA [Suspect]
     Active Substance: INFLIXIMAB-DYYB
     Dosage: 300 MG AT 0, 2, 6, THEN EVERY 8 WEEKS
     Route: 042
     Dates: start: 20200421
  19. INFLECTRA [Suspect]
     Active Substance: INFLIXIMAB-DYYB
     Dosage: 10 MG/KG EVERY 8 WEEKS
     Route: 042
     Dates: start: 20200818

REACTIONS (52)
  - Ear infection [Recovered/Resolved]
  - Eating disorder [Unknown]
  - Erythema [Unknown]
  - Eustachian tube dysfunction [Unknown]
  - Drug ineffective [Unknown]
  - Insomnia [Unknown]
  - Sinusitis [Not Recovered/Not Resolved]
  - Syncope [Unknown]
  - Nausea [Unknown]
  - Respiration abnormal [Unknown]
  - Influenza [Unknown]
  - Off label use [Unknown]
  - Arrhythmia [Unknown]
  - Anger [Unknown]
  - Balance disorder [Unknown]
  - Anxiety [Not Recovered/Not Resolved]
  - Tremor [Recovered/Resolved]
  - Confusional state [Unknown]
  - Burning sensation [Not Recovered/Not Resolved]
  - Bronchitis [Unknown]
  - Ear discomfort [Unknown]
  - Hypoacusis [Unknown]
  - Suicidal ideation [Unknown]
  - Poor venous access [Unknown]
  - Infusion site pain [Unknown]
  - Chills [Unknown]
  - Drug specific antibody present [Recovering/Resolving]
  - Fatigue [Not Recovered/Not Resolved]
  - Body temperature increased [Unknown]
  - Pain in jaw [Unknown]
  - Dizziness [Unknown]
  - Neurogenic shock [Unknown]
  - Abnormal behaviour [Unknown]
  - Fear of injection [Unknown]
  - Blood pressure fluctuation [Unknown]
  - Feeling of body temperature change [Unknown]
  - Nervousness [Unknown]
  - Malaise [Unknown]
  - Enteritis [Unknown]
  - Tooth disorder [Unknown]
  - Presyncope [Unknown]
  - Nasopharyngitis [Not Recovered/Not Resolved]
  - Infusion site extravasation [Unknown]
  - Blood pressure diastolic decreased [Unknown]
  - Ear pain [Not Recovered/Not Resolved]
  - Intentional product use issue [Unknown]
  - Inappropriate schedule of product administration [Unknown]
  - Headache [Unknown]
  - Cognitive disorder [Unknown]
  - Cough [Not Recovered/Not Resolved]
  - Hyperhidrosis [Recovered/Resolved]
  - Abdominal pain [Not Recovered/Not Resolved]

NARRATIVE: CASE EVENT DATE: 2018
